FAERS Safety Report 5822852-0 (Version None)
Quarter: 2008Q3

REPORT INFORMATION
  Report Type: 
  Country: None (occurrence: None)
  Receive Date: 20080725
  Receipt Date: 20080711
  Transmission Date: 20090109
  Serious: Yes (Death, Other)
  Sender: FDA-Public Use
  Company Number: GR-GENENTECH-264683

PATIENT
  Age: 78 Year
  Sex: Female

DRUGS (4)
  1. AVASTIN [Suspect]
     Indication: COLON CANCER
     Dosage: 280 MG, QD
     Route: 042
     Dates: start: 20080510, end: 20080510
  2. OXALIPLATIN [Suspect]
     Indication: COLON CANCER
     Dosage: 125 MG, QD
     Route: 042
     Dates: start: 20080510, end: 20080510
  3. ZOFRAN [Concomitant]
     Indication: DRUG USE FOR UNKNOWN INDICATION
     Dosage: UNK
     Dates: start: 20080510, end: 20080510
  4. DECADRON [Concomitant]
     Indication: DRUG USE FOR UNKNOWN INDICATION
     Dosage: UNK
     Dates: start: 20080510, end: 20080510

REACTIONS (3)
  - HYPERSENSITIVITY [None]
  - NON-CARDIOGENIC PULMONARY OEDEMA [None]
  - RESPIRATORY FAILURE [None]
